FAERS Safety Report 4266833-X (Version None)
Quarter: 2004Q1

REPORT INFORMATION
  Report Type: 
  Country: None (occurrence: None)
  Receive Date: 20040108
  Receipt Date: 20040108
  Transmission Date: 20041129
  Serious: No
  Sender: FDA-Public Use
  Company Number: None

PATIENT
  Age: 10 Year
  Sex: Female
  Weight: 70.3075 kg

DRUGS (2)
  1. ABILIFY [Suspect]
     Indication: ASPERGER'S DISORDER
     Dosage: 15 MG DAILY ORAL
     Route: 048
     Dates: start: 20021216, end: 20040107
  2. LEXAPRO [Suspect]
     Indication: ANXIETY
     Dosage: 20 MG DAILY ORAL
     Route: 048
     Dates: start: 20030510, end: 20040107

REACTIONS (12)
  - ACNE [None]
  - CONSTIPATION [None]
  - DYSKINESIA [None]
  - FEAR [None]
  - GLUCOSE TOLERANCE IMPAIRED [None]
  - INSULIN RESISTANCE [None]
  - MORBID THOUGHTS [None]
  - NIGHTMARE [None]
  - POLYCYSTIC OVARIES [None]
  - SLEEP DISORDER [None]
  - THINKING ABNORMAL [None]
  - WEIGHT INCREASED [None]
